FAERS Safety Report 8710536 (Version 3)
Quarter: 2012Q4

REPORT INFORMATION
  Report Type: Spontaneous
  Country: JP (occurrence: None)
  Receive Date: 20120723
  Receipt Date: 20120830
  Transmission Date: 20130627
  Serious: Yes (Life-Threatening, Hospitalization, Other)
  Sender: FDA-Public Use
  Company Number: ABR_00564_2012

PATIENT
  Sex: Female

DRUGS (6)
  1. ERYTHROMYCIN [Suspect]
     Indication: PRODUCT USED FOR UNKNOWN INDICATION
     Dosage: (DF TRANSPLACENTAL)
     Route: 064
  2. RITODRINE HYDROCHLORIDE [Suspect]
     Indication: PRODUCT USED FOR UNKNOWN INDICATION
     Dosage: (DF TRANSPLACENTAL)
     Route: 064
  3. CEFAZOLIN [Suspect]
     Indication: PRODUCT USED FOR UNKNOWN INDICATION
     Dosage: (DF TRANSPLACENTAL)
     Route: 064
  4. BETAMETHASONE SODIUM PHOSPHATE [Suspect]
     Indication: PRODUCT USED FOR UNKNOWN INDICATION
     Dosage: (DF)
     Route: 064
  5. FERRIC OXIDE [Suspect]
     Indication: PRODUCT USED FOR UNKNOWN INDICATION
     Dosage: (DF)
     Route: 064
  6. CARBAZOCHROME SODIUM SULFONATE [Suspect]
     Indication: PRODUCT USED FOR UNKNOWN INDICATION
     Dosage: (DF)
     Route: 064

REACTIONS (13)
  - Intraventricular haemorrhage [None]
  - Escherichia infection [None]
  - Tachycardia foetal [None]
  - Premature baby [None]
  - Foetal heart rate deceleration [None]
  - Foetal exposure during pregnancy [None]
  - Foetal disorder [None]
  - Amniotic cavity infection [None]
  - Caesarean section [None]
  - Pulmonary hypertension [None]
  - Sepsis neonatal [None]
  - Cerebral ventricle dilatation [None]
  - Congenital infection [None]
